FAERS Safety Report 5456990-1 (Version None)
Quarter: 2007Q3

REPORT INFORMATION
  Report Type: 
  Country: None (occurrence: None)
  Receive Date: 20070918
  Receipt Date: 20070228
  Transmission Date: 20080115
  Serious: Yes (Hospitalization, Disabling)
  Sender: FDA-Public Use
  Company Number: US-ASTRAZENECA-2006UW27871

PATIENT
  Age: 28 Year
  Sex: Female
  Weight: 108.2 kg

DRUGS (3)
  1. SEROQUEL [Suspect]
     Indication: BIPOLAR DISORDER
     Route: 048
     Dates: start: 19990212
  2. HALDOL [Concomitant]
  3. ZYPREXA [Concomitant]
     Dates: start: 19960101

REACTIONS (2)
  - DIABETES MELLITUS [None]
  - PARAESTHESIA [None]
